FAERS Safety Report 15572370 (Version 1)
Quarter: 2018Q4

REPORT INFORMATION
  Report Type: Spontaneous
  Country: JP (occurrence: JP)
  Receive Date: 20181031
  Receipt Date: 20181031
  Transmission Date: 20190205
  Serious: Yes (Life-Threatening, Other)
  Sender: FDA-Public Use
  Company Number: JP-GLAXOSMITHKLINE-JP2018JPN195271

PATIENT
  Age: 82 Year
  Sex: Female
  Weight: 65 kg

DRUGS (11)
  1. ADALAT-CR TABLET [Concomitant]
     Dosage: 20 MG, QD
     Dates: end: 20180710
  2. RIVASTACH [Concomitant]
     Active Substance: RIVASTIGMINE
     Dosage: 4.5 MG, QD
     Dates: end: 20180712
  3. MAGMITT TABLET [Concomitant]
     Dosage: 660 MG, BID
     Dates: end: 20180710
  4. DEPAKENE-R TABLET [Concomitant]
     Dosage: UNK
     Dates: end: 20180712
  5. MEMARY [Concomitant]
     Active Substance: MEMANTINE HYDROCHLORIDE
     Dosage: 5 MG, BID
     Dates: end: 20180710
  6. FUROSEMIDE TABLETS [Concomitant]
     Active Substance: FUROSEMIDE
     Dosage: 10 MG, QD
     Dates: end: 20180712
  7. CYMBALTA [Concomitant]
     Active Substance: DULOXETINE HYDROCHLORIDE
     Dosage: 20 MG, QD
  8. VALTREX [Suspect]
     Active Substance: VALACYCLOVIR HYDROCHLORIDE
     Indication: HERPES ZOSTER
     Dosage: 1000 MG, TID
     Route: 048
     Dates: start: 20180705, end: 20180710
  9. PRAZAXA [Concomitant]
     Active Substance: DABIGATRAN ETEXILATE MESYLATE
     Dosage: 110 MG, BID
     Dates: end: 20180712
  10. SENNARIDE [Concomitant]
     Active Substance: SENNOSIDES A AND B
     Indication: CONSTIPATION
     Dosage: 24 MG, PRN
  11. EQUA [Concomitant]
     Active Substance: VILDAGLIPTIN
     Dosage: 50 MG, BID
     Dates: end: 20180710

REACTIONS (8)
  - Delirium [Unknown]
  - Depressed level of consciousness [Recovering/Resolving]
  - Myoclonus [Unknown]
  - Toxic encephalopathy [Recovering/Resolving]
  - Nausea [Unknown]
  - Somnolence [Unknown]
  - Decreased appetite [Unknown]
  - Renal impairment [Recovered/Resolved]

NARRATIVE: CASE EVENT DATE: 20180706
